FAERS Safety Report 8536360-X (Version None)
Quarter: 2012Q3

REPORT INFORMATION
  Report Type: 
  Country: None (occurrence: None)
  Receive Date: 20120725
  Receipt Date: 20120716
  Transmission Date: 20120928
  Serious: Yes (Hospitalization, Other)
  Sender: FDA-Public Use
  Company Number: FR-PFIZER INC-2012177594

PATIENT
  Age: 64 Year
  Sex: Male

DRUGS (5)
  1. CORDARONE [Interacting]
     Dosage: 400MG, DAILY
     Route: 048
     Dates: start: 20120613, end: 20120613
  2. CORDARONE [Suspect]
     Indication: ATRIAL FIBRILLATION
     Dosage: 600MG, DAILY
     Route: 048
     Dates: start: 20120612, end: 20120612
  3. PRADAXA [Interacting]
     Indication: ATRIAL FIBRILLATION
     Dosage: 150 MG TWICE DAILY
     Route: 048
     Dates: start: 20120612, end: 20120615
  4. CORDARONE [Interacting]
     Dosage: 200MG, DAILY
     Route: 048
     Dates: start: 20120614, end: 20120614
  5. RAMIPRIL [Concomitant]
     Dosage: 2.5 MG DAILY
     Route: 048
     Dates: start: 20120612, end: 20120615

REACTIONS (8)
  - GAMMA-GLUTAMYLTRANSFERASE INCREASED [None]
  - BILIRUBIN CONJUGATED INCREASED [None]
  - DRUG INTERACTION [None]
  - INTERNATIONAL NORMALISED RATIO INCREASED [None]
  - TRANSAMINASES INCREASED [None]
  - CARDIAC FAILURE [None]
  - HEPATIC STEATOSIS [None]
  - RENAL FAILURE [None]
